FAERS Safety Report 6127452-3 (Version None)
Quarter: 2009Q1

REPORT INFORMATION
  Report Type: 
  Country: None (occurrence: None)
  Receive Date: 20090323
  Receipt Date: 20090318
  Transmission Date: 20090719
  Serious: Yes (Other)
  Sender: FDA-Public Use
  Company Number: BR-ASTRAZENECA-2007UW14278

PATIENT
  Age: 63 Year
  Sex: Male
  Weight: 98 kg

DRUGS (5)
  1. CASODEX [Suspect]
     Route: 048
     Dates: start: 20050601, end: 20060601
  2. CASODEX [Suspect]
     Route: 048
  3. ZOLADEX [Suspect]
     Indication: PROSTATE CANCER
     Route: 058
     Dates: start: 20050601
  4. HYDROCHLOROTHIAZIDE [Concomitant]
     Indication: BLOOD PRESSURE MANAGEMENT
     Dosage: 1/2 PILL DAILY
     Route: 048
     Dates: start: 20070101
  5. HYDROCHLOROTHIAZIDE [Concomitant]
     Indication: HYPERTENSION
     Dosage: 1/2 PILL DAILY
     Route: 048
     Dates: start: 20070101

REACTIONS (7)
  - ABDOMINAL DISTENSION [None]
  - BLOOD PRESSURE FLUCTUATION [None]
  - BREAST PAIN [None]
  - BREAST SWELLING [None]
  - HYPERHIDROSIS [None]
  - INCREASED APPETITE [None]
  - WEIGHT INCREASED [None]
